FAERS Safety Report 7178996-7 (Version None)
Quarter: 2010Q4

REPORT INFORMATION
  Report Type: 
  Country: None (occurrence: None)
  Receive Date: 20101221
  Receipt Date: 20101209
  Transmission Date: 20110411
  Serious: Yes (Other)
  Sender: FDA-Public Use
  Company Number: PHHY2010DE83513

PATIENT
  Sex: Female

DRUGS (1)
  1. TEGRETOL [Suspect]
     Dosage: UNK
     Dates: end: 19970101

REACTIONS (4)
  - DYSPNOEA [None]
  - METASTASES TO LUNG [None]
  - NEOPLASM MALIGNANT [None]
  - PULMONARY FIBROSIS [None]
